FAERS Safety Report 4801186-7 (Version None)
Quarter: 2005Q4

REPORT INFORMATION
  Report Type: 
  Country: None (occurrence: None)
  Receive Date: 20051011
  Receipt Date: 20051004
  Transmission Date: 20060501
  Serious: Yes (Other)
  Sender: FDA-Public Use
  Company Number: GBWYE027504OCT05

PATIENT
  Age: 32 Year
  Sex: Female

DRUGS (2)
  1. MINOCIN [Suspect]
     Indication: ACNE
     Dosage: 100MG, ORAL
     Route: 048
     Dates: start: 20050806, end: 20050820
  2. EFFEXOR [Concomitant]

REACTIONS (2)
  - SENSITIVITY OF TEETH [None]
  - TOOTHACHE [None]
